FAERS Safety Report 22255960 (Version 1)
Quarter: 2023Q2

REPORT INFORMATION
  Report Type: Report from Study
  Country: IL (occurrence: IL)
  Receive Date: 20230426
  Receipt Date: 20230426
  Transmission Date: 20230721
  Serious: Yes (Death, Hospitalization)
  Sender: FDA-Public Use
  Company Number: IL-ABBVIE-4741206

PATIENT
  Age: 78 Year
  Sex: Male

DRUGS (36)
  1. VENETOCLAX [Suspect]
     Active Substance: VENETOCLAX
     Indication: Acute myeloid leukaemia
     Dosage: 400 MILLIGRAM?DURATION TEXT: INTERRUPTION ADVERSE EVENT
     Route: 048
     Dates: start: 20200825, end: 20201012
  2. VENETOCLAX [Suspect]
     Active Substance: VENETOCLAX
     Indication: Acute myeloid leukaemia
     Dosage: 400 MILLIGRAM?DURATION TEXT: INTERRUPTION COUNT RECOVERY
     Route: 048
     Dates: start: 20220220, end: 20220305
  3. VENETOCLAX [Suspect]
     Active Substance: VENETOCLAX
     Indication: Acute myeloid leukaemia
     Dosage: 400 MILLIGRAM?DURATION TEXT: INTERRUPTION ADVERSE EVENT
     Route: 048
     Dates: start: 20210103, end: 20210117
  4. VENETOCLAX [Suspect]
     Active Substance: VENETOCLAX
     Indication: Acute myeloid leukaemia
     Dosage: 200 MILLIGRAM?DURATION TEXT: RAMP UP
     Route: 048
     Dates: start: 20211018, end: 20211018
  5. VENETOCLAX [Suspect]
     Active Substance: VENETOCLAX
     Indication: Acute myeloid leukaemia
     Dosage: 400 MILLIGRAM?DURATION TEXT: INTERRUPTION COUNT RECOVERY
     Route: 048
     Dates: start: 20220117, end: 20220131
  6. VENETOCLAX [Suspect]
     Active Substance: VENETOCLAX
     Indication: Acute myeloid leukaemia
     Dosage: 400 MILLIGRAM?DURATION TEXT: INTERRUPTION ADVERSE EVENT
     Route: 048
     Dates: start: 20210314, end: 20210328
  7. VENETOCLAX [Suspect]
     Active Substance: VENETOCLAX
     Indication: Acute myeloid leukaemia
     Dosage: 400 MILLIGRAM?DURATION TEXT: INTERRUPTION COUNT RECOVERY
     Route: 048
     Dates: start: 20211221, end: 20220104
  8. VENETOCLAX [Suspect]
     Active Substance: VENETOCLAX
     Indication: Acute myeloid leukaemia
     Dosage: 400 MILLIGRAM?DURATION TEXT: DISCONTINUATION PROGRESSION OF DISEASE
     Route: 048
     Dates: start: 20220403, end: 20220417
  9. VENETOCLAX [Suspect]
     Active Substance: VENETOCLAX
     Indication: Acute myeloid leukaemia
     Dosage: 300 MILLIGRAM?DURATION TEXT: DOSE REDUCTION COUNT RECOVERY
     Route: 048
     Dates: start: 20211019, end: 20211019
  10. VENETOCLAX [Suspect]
     Active Substance: VENETOCLAX
     Indication: Acute myeloid leukaemia
     Dosage: 100 MILLIGRAM?DURATION TEXT: RAMP UP
     Route: 048
     Dates: start: 20211017, end: 20211017
  11. VENETOCLAX [Suspect]
     Active Substance: VENETOCLAX
     Indication: Acute myeloid leukaemia
     Dosage: 400 MILLIGRAM?DURATION TEXT: INTERRUPTION COUNT RECOVERY
     Route: 048
     Dates: start: 20211101, end: 20211115
  12. VENETOCLAX [Suspect]
     Active Substance: VENETOCLAX
     Indication: Acute myeloid leukaemia
     Dosage: 400 MILLIGRAM?DURATION TEXT: INTERRUPTION COUNT RECOVERY
     Route: 048
     Dates: start: 20211020, end: 20211031
  13. VENETOCLAX [Suspect]
     Active Substance: VENETOCLAX
     Indication: Acute myeloid leukaemia
     Dosage: 400 MILLIGRAM?DURATION TEXT: INTERRUPTION ADVERSE EVENT
     Route: 048
     Dates: start: 20210523, end: 20210606
  14. VENETOCLAX [Suspect]
     Active Substance: VENETOCLAX
     Indication: Acute myeloid leukaemia
     Dosage: 100 MILLIGRAM?DURATION TEXT: RAMP UP
     Route: 048
     Dates: start: 20200823, end: 20200823
  15. VENETOCLAX [Suspect]
     Active Substance: VENETOCLAX
     Indication: Acute myeloid leukaemia
     Dosage: 200 MILLIGRAM?DURATION TEXT: RAMP UP
     Route: 048
     Dates: start: 20200824, end: 20200824
  16. LINAGLIPTIN [Concomitant]
     Active Substance: LINAGLIPTIN
     Indication: Diabetes mellitus
     Dates: start: 202003
  17. VITAMIN D [Concomitant]
     Active Substance: VITAMIN D NOS
     Indication: Vitamin supplementation
     Dates: start: 202003
  18. ALLOPURINOL [Concomitant]
     Active Substance: ALLOPURINOL
     Indication: Prophylaxis
     Dates: start: 20200804
  19. ASPIRIN [Concomitant]
     Active Substance: ASPIRIN
     Indication: Myocardial ischaemia
     Dates: start: 1998
  20. AZACITIDINE [Suspect]
     Active Substance: AZACITIDINE
     Indication: Acute myeloid leukaemia
     Dosage: 120 MILLIGRAM?DURATION TEXT: CYCLE 11
     Route: 058
     Dates: start: 20220403, end: 20220407
  21. AZACITIDINE [Suspect]
     Active Substance: AZACITIDINE
     Indication: Acute myeloid leukaemia
     Dosage: 120 MILLIGRAM?DURATION TEXT: CYCLE 9
     Route: 058
     Dates: start: 20220102, end: 20220106
  22. AZACITIDINE [Suspect]
     Active Substance: AZACITIDINE
     Indication: Acute myeloid leukaemia
     Dosage: 100 MILLIGRAM?DURATION TEXT: CYCLE 4  INTERRUPTION COUNT RECOVERY
     Route: 042
     Dates: start: 20210314, end: 20210318
  23. AZACITIDINE [Suspect]
     Active Substance: AZACITIDINE
     Indication: Acute myeloid leukaemia
     Dosage: 100 MILLIGRAM?DURATION TEXT: CYCLE 5 INTERRUPTION COUNT RECOVERY
     Route: 042
     Dates: start: 20210523, end: 20210527
  24. AZACITIDINE [Suspect]
     Active Substance: AZACITIDINE
     Indication: Acute myeloid leukaemia
     Dosage: 100 MILLIGRAM?DURATION TEXT: CYCLE 3  INTERRUPTION COUNT RECOVERY
     Route: 042
     Dates: start: 20210103, end: 20210107
  25. AZACITIDINE [Suspect]
     Active Substance: AZACITIDINE
     Indication: Acute myeloid leukaemia
     Dosage: 140 MILLIGRAM?DURATION TEXT: CYCLE 2  INTERRUPTION COUNT RECOVERY
     Route: 042
     Dates: start: 20200927, end: 20201001
  26. AZACITIDINE [Suspect]
     Active Substance: AZACITIDINE
     Indication: Acute myeloid leukaemia
     Dosage: 120 MILLIGRAM?DURATION TEXT: CYCLE 10
     Route: 058
     Dates: start: 20220220, end: 20220224
  27. AZACITIDINE [Suspect]
     Active Substance: AZACITIDINE
     Indication: Acute myeloid leukaemia
     Dosage: 140 MILLIGRAM?DURATION TEXT: CYCLE 1
     Route: 058
     Dates: start: 20200830, end: 20200901
  28. AZACITIDINE [Suspect]
     Active Substance: AZACITIDINE
     Indication: Acute myeloid leukaemia
     Dosage: 120 MILLIGRAM?DURATION TEXT: CYCLE 8
     Route: 058
     Dates: start: 20211221, end: 20211224
  29. AZACITIDINE [Suspect]
     Active Substance: AZACITIDINE
     Indication: Acute myeloid leukaemia
     Dosage: 120 MILLIGRAM?DURATION TEXT: CYCLE 6
     Route: 058
     Dates: start: 20211017, end: 20211021
  30. AZACITIDINE [Suspect]
     Active Substance: AZACITIDINE
     Indication: Acute myeloid leukaemia
     Dosage: 120 MILLIGRAM?DURATION TEXT: CYCLE 7
     Route: 058
     Dates: start: 20211101, end: 20211105
  31. AZACITIDINE [Suspect]
     Active Substance: AZACITIDINE
     Indication: Acute myeloid leukaemia
     Dosage: 140 MILLIGRAM?DURATION TEXT: CYCLE 1
     Route: 058
     Dates: start: 20200823, end: 20200826
  32. VALSARTAN [Concomitant]
     Active Substance: VALSARTAN
     Indication: Hypertension
     Dates: start: 2018
  33. COLCHICINE [Concomitant]
     Active Substance: COLCHICINE
     Indication: Gout
     Dates: start: 2013
  34. covid-19 vaccines pfizer [Concomitant]
     Indication: COVID-19 prophylaxis
     Dosage: SECOND DOSE
     Route: 030
     Dates: start: 20210121, end: 20210121
  35. covid-19 vaccines pfizer [Concomitant]
     Indication: COVID-19 prophylaxis
     Dosage: 1ST DOSE
     Route: 030
     Dates: start: 20201231, end: 20201231
  36. AMLODIPINE [Concomitant]
     Active Substance: AMLODIPINE BESYLATE
     Indication: Hypertension
     Dates: start: 2018

REACTIONS (4)
  - Thrombocytopenia [Fatal]
  - Anaemia [Fatal]
  - Disease progression [Fatal]
  - Thrombocytopenia [Recovered/Resolved]

NARRATIVE: CASE EVENT DATE: 20211011
